FAERS Safety Report 9579895 (Version 1)
Quarter: 2013Q3

REPORT INFORMATION
  Report Type: Spontaneous
  Country: US (occurrence: None)
  Receive Date: 20130916
  Receipt Date: 20130916
  Transmission Date: 20140515
  Serious: Yes (Other)
  Sender: FDA-Public Use
  Company Number: JPI-P-026394

PATIENT
  Age: 65 Year
  Sex: Female
  Weight: 112.04 kg

DRUGS (11)
  1. XYREM (500 MILLIGRAM/MILLILITERS, SOLUTION) (SODIUM OXYBATE) [Suspect]
     Indication: CATAPLEXY
     Dosage: 6 GM (3 GM, 2 IN 1 D), ORAL
     Route: 048
     Dates: start: 20050516
  2. XYREM (500 MILLIGRAM/MILLILITERS, SOLUTION) (SODIUM OXYBATE) [Suspect]
     Indication: SOMNOLENCE
     Dosage: 6 GM (3 GM, 2 IN 1 D), ORAL
     Route: 048
     Dates: start: 20050516
  3. ESTERFIELD ESTROGENS AND METHYLESTOSTERONE [Concomitant]
  4. BUPROPION HYDROCHLORIDE [Concomitant]
  5. ARIPIPRAZOLE [Concomitant]
  6. PRIMIDONE [Concomitant]
  7. LEVOTHYROXINE SODIUM [Concomitant]
  8. METOPROLOL SUCCINATE [Concomitant]
  9. LAMOTRIGINE [Concomitant]
  10. VITAMIN E [Concomitant]
  11. L-METHYLFOLATE CALCIUM [Concomitant]

REACTIONS (6)
  - Weight decreased [None]
  - Feeling abnormal [None]
  - Terminal insomnia [None]
  - Nasopharyngitis [None]
  - Rhinorrhoea [None]
  - Sneezing [None]
